FAERS Safety Report 6042974-1 (Version None)
Quarter: 2009Q1

REPORT INFORMATION
  Report Type: 
  Country: None (occurrence: None)
  Receive Date: 20090119
  Receipt Date: 20081218
  Transmission Date: 20090719
  Serious: No
  Sender: FDA-Public Use
  Company Number: US-BAYER-200841194NA

PATIENT

DRUGS (2)
  1. CIPRO [Suspect]
     Indication: UNEVALUABLE EVENT
  2. COLISTIN SULFATE [Suspect]

REACTIONS (1)
  - PARAESTHESIA ORAL [None]
